FAERS Safety Report 5316671-1 (Version None)
Quarter: 2007Q2

REPORT INFORMATION
  Report Type: 
  Country: None (occurrence: None)
  Receive Date: 20070504
  Receipt Date: 20070412
  Transmission Date: 20071010
  Serious: Yes (Hospitalization, Disabling, Other)
  Sender: FDA-Public Use
  Company Number: US-PURDUE-DEU_2007_0003124

PATIENT
  Age: 47 Year
  Sex: Male

DRUGS (2)
  1. MORPHINE SULFATE [Suspect]
     Indication: BACK PAIN
     Dosage: 32 MG, DAILY
     Route: 037
  2. MORPHINE SULFATE [Suspect]
     Dosage: UNK, SEE TEXT
     Route: 037

REACTIONS (3)
  - INJECTION SITE MASS [None]
  - INTRASPINAL ABSCESS [None]
  - STREPTOCOCCAL INFECTION [None]
